FAERS Safety Report 23721064 (Version 1)
Quarter: 2024Q2

REPORT INFORMATION
  Report Type: Spontaneous
  Country: CN (occurrence: CN)
  Receive Date: 20240409
  Receipt Date: 20240409
  Transmission Date: 20240717
  Serious: Yes (Other)
  Sender: FDA-Public Use
  Company Number: CN-JNJFOC-20240409251

PATIENT
  Age: 1 Year
  Sex: Female
  Weight: 10 kg

DRUGS (2)
  1. REMICADE [Suspect]
     Active Substance: INFLIXIMAB
     Indication: Enteritis
     Route: 041
     Dates: start: 20240325, end: 20240325
  2. SODIUM CHLORIDE [Concomitant]
     Active Substance: SODIUM CHLORIDE
     Route: 041

REACTIONS (4)
  - Urticaria [Recovering/Resolving]
  - Infusion related reaction [Recovering/Resolving]
  - Irritability [Recovering/Resolving]
  - Off label use [Unknown]

NARRATIVE: CASE EVENT DATE: 20240325
